FAERS Safety Report 15263346 (Version 2)
Quarter: 2018Q3

REPORT INFORMATION
  Report Type: Spontaneous
  Country: US (occurrence: US)
  Receive Date: 20180810
  Receipt Date: 20180816
  Transmission Date: 20181010
  Serious: No
  Sender: FDA-Public Use
  Company Number: US-B.I. PHARMACEUTICALS,INC./RIDGEFIELD-2018-BI-040015

PATIENT
  Age: 71 Year
  Sex: Male

DRUGS (3)
  1. FUROSEMIDE. [Concomitant]
     Active Substance: FUROSEMIDE
     Indication: CARDIAC FAILURE CONGESTIVE
     Route: 048
  2. INSULIN [Concomitant]
     Active Substance: INSULIN NOS
     Indication: TYPE 2 DIABETES MELLITUS
     Dosage: FORMULATION: PUMP
     Route: 058
  3. JARDIANCE [Suspect]
     Active Substance: EMPAGLIFLOZIN
     Indication: TYPE 2 DIABETES MELLITUS
     Route: 048
     Dates: start: 20180727, end: 20180802

REACTIONS (1)
  - Gait disturbance [Recovered/Resolved]

NARRATIVE: CASE EVENT DATE: 201807
